FAERS Safety Report 7293243-3 (Version None)
Quarter: 2011Q1

REPORT INFORMATION
  Report Type: 
  Country: None (occurrence: None)
  Receive Date: 20110210
  Receipt Date: 20110210
  Transmission Date: 20110831
  Serious: No
  Sender: FDA-Public Use
  Company Number: None

PATIENT
  Age: 46 Year
  Sex: Female
  Weight: 62.1428 kg

DRUGS (3)
  1. CIPROFLOXACIN [Suspect]
     Indication: URINARY TRACT INFECTION
     Dosage: 750MG 1 ADAY PO
     Route: 048
     Dates: start: 20100106, end: 20100108
  2. NATURAL THYROID [Concomitant]
  3. NATURAL PROGESTERONE [Concomitant]

REACTIONS (7)
  - DEPRESSION [None]
  - ANXIETY [None]
  - PAIN OF SKIN [None]
  - BURNING SENSATION [None]
  - HYPOAESTHESIA [None]
  - INSOMNIA [None]
  - INTERVERTEBRAL DISC PROTRUSION [None]
